FAERS Safety Report 5934925-2 (Version None)
Quarter: 2008Q4

REPORT INFORMATION
  Report Type: 
  Country: None (occurrence: None)
  Receive Date: 20081027
  Receipt Date: 20081013
  Transmission Date: 20090506
  Serious: Yes (Hospitalization)
  Sender: FDA-Public Use
  Company Number: 1-16738238

PATIENT
  Age: 54 Year
  Sex: Female

DRUGS (1)
  1. NORTRIPTYLINE HCL [Suspect]
     Dosage: 1000 MG, ONCE, ORAL
     Route: 048

REACTIONS (3)
  - GLASGOW COMA SCALE ABNORMAL [None]
  - OVERDOSE [None]
  - STRESS CARDIOMYOPATHY [None]
